FAERS Safety Report 5022860-6 (Version None)
Quarter: 2006Q2

REPORT INFORMATION
  Report Type: 
  Country: None (occurrence: None)
  Receive Date: 20060426
  Receipt Date: 20060322
  Transmission Date: 20061013
  Serious: Yes (Other)
  Sender: FDA-Public Use
  Company Number: 2006041462

PATIENT
  Age: 51 Year
  Sex: Female
  Weight: 88.4514 kg

DRUGS (8)
  1. LYRICA [Suspect]
     Indication: COMPLEX REGIONAL PAIN SYNDROME
     Dosage: 150 MG (150 MG,1 IN 1 D),ORAL
     Route: 048
     Dates: start: 20060201
  2. OXYCONTIN [Concomitant]
  3. PAXIL [Concomitant]
  4. KEPPRA [Concomitant]
  5. SKELAXIN [Concomitant]
  6. XANAX [Concomitant]
  7. SOMA [Concomitant]
  8. REMERON [Concomitant]

REACTIONS (4)
  - CONDITION AGGRAVATED [None]
  - CONSTIPATION [None]
  - HALLUCINATION, VISUAL [None]
  - PAIN [None]
